FAERS Safety Report 13177310 (Version 1)
Quarter: 2017Q1

REPORT INFORMATION
  Report Type: Report from Study
  Country: US (occurrence: US)
  Receive Date: 20170201
  Receipt Date: 20170201
  Transmission Date: 20170428
  Serious: No
  Sender: FDA-Public Use
  Company Number: US-EXELIXIS-CABO-15005549

PATIENT
  Sex: Female

DRUGS (6)
  1. COMETRIQ [Suspect]
     Active Substance: CABOZANTINIB S-MALATE
     Indication: THYROID CANCER
     Dosage: 100 MG, QD
     Route: 048
     Dates: start: 20150614, end: 20150707
  2. XGEVA [Concomitant]
     Active Substance: DENOSUMAB
  3. COMETRIQ [Suspect]
     Active Substance: CABOZANTINIB S-MALATE
     Dosage: 120 MG, QD
     Route: 048
     Dates: start: 20150708, end: 2015
  4. COMETRIQ [Suspect]
     Active Substance: CABOZANTINIB S-MALATE
     Dosage: 100 MG, QD
     Route: 048
     Dates: start: 20150803, end: 2015
  5. CALCIUM [Concomitant]
     Active Substance: CALCIUM
  6. COMETRIQ [Suspect]
     Active Substance: CABOZANTINIB S-MALATE
     Dosage: 80 MG, QD
     Route: 048
     Dates: start: 201510

REACTIONS (5)
  - Tongue discomfort [Unknown]
  - Hypertension [Unknown]
  - Dry skin [Unknown]
  - Diarrhoea [Not Recovered/Not Resolved]
  - Tumour marker increased [Unknown]
